FAERS Safety Report 23760516 (Version 1)
Quarter: 2024Q2

REPORT INFORMATION
  Report Type: Report from Study
  Country: BR (occurrence: BR)
  Receive Date: 20240419
  Receipt Date: 20240419
  Transmission Date: 20240716
  Serious: Yes (Hospitalization, Other)
  Sender: FDA-Public Use
  Company Number: BR-JNJFOC-20220441693

PATIENT
  Age: 77 Year
  Sex: Male

DRUGS (5)
  1. SIMPONI [Suspect]
     Active Substance: GOLIMUMAB
     Indication: Rheumatoid arthritis
     Route: 058
     Dates: start: 20190525
  2. SIMPONI [Suspect]
     Active Substance: GOLIMUMAB
  3. GOLIMUMAB [Suspect]
     Active Substance: GOLIMUMAB
     Indication: Rheumatoid arthritis
     Route: 058
     Dates: start: 20190525
  4. GOLIMUMAB [Suspect]
     Active Substance: GOLIMUMAB
  5. GOLIMUMAB [Suspect]
     Active Substance: GOLIMUMAB

REACTIONS (6)
  - Cerebrovascular accident [Not Recovered/Not Resolved]
  - Dementia Alzheimer^s type [Unknown]
  - Atrophy [Unknown]
  - Off label use [Unknown]
  - Dengue fever [Unknown]
  - Weight decreased [Unknown]

NARRATIVE: CASE EVENT DATE: 20210101
